FAERS Safety Report 19415088 (Version 5)
Quarter: 2021Q3

REPORT INFORMATION
  Report Type: Other
  Country: US (occurrence: US)
  Receive Date: 20210615
  Receipt Date: 20210924
  Transmission Date: 20211014
  Serious: No
  Sender: FDA-Public Use
  Company Number: US-NEUROCRINE BIOSCIENCES INC.-2021NBI02827

PATIENT

DRUGS (5)
  1. INGREZZA [Suspect]
     Active Substance: VALBENAZINE
     Indication: TARDIVE DYSKINESIA
     Dosage: 80 MILLIGRAM, QD
     Route: 048
     Dates: start: 20210219
  2. DEPAKOTE ER [Concomitant]
     Active Substance: DIVALPROEX SODIUM
     Indication: BIPOLAR DISORDER
     Dosage: 500 MILLIGRAM
     Route: 048
     Dates: start: 2014
  3. LURASIDONE [Concomitant]
     Active Substance: LURASIDONE
     Indication: BIPOLAR DISORDER
     Dosage: 20 MILLIGRAM
     Route: 048
     Dates: start: 202011
  4. INGREZZA [Suspect]
     Active Substance: VALBENAZINE
     Dosage: 40 MILLIGRAM, QD
     Route: 048
     Dates: start: 20201112, end: 20210218
  5. MYRBETRIC [Concomitant]
     Active Substance: MIRABEGRON
     Dosage: UNK

REACTIONS (1)
  - Drug ineffective [Unknown]
